FAERS Safety Report 7567924-8 (Version None)
Quarter: 2011Q2

REPORT INFORMATION
  Report Type: 
  Country: None (occurrence: None)
  Receive Date: 20110623
  Receipt Date: 20110513
  Transmission Date: 20111010
  Serious: Yes (Hospitalization)
  Sender: FDA-Public Use
  Company Number: CH-SANOFI-AVENTIS-2011SA039212

PATIENT
  Age: 87 Year
  Sex: Male

DRUGS (2)
  1. SORBITOL [Concomitant]
     Route: 065
  2. KAYEXALATE [Suspect]
     Route: 065

REACTIONS (2)
  - ABDOMINAL PAIN [None]
  - DIVERTICULITIS [None]
